FAERS Safety Report 8291225-6 (Version None)
Quarter: 2012Q2

REPORT INFORMATION
  Report Type: 
  Country: None (occurrence: None)
  Receive Date: 20120413
  Receipt Date: 20120402
  Transmission Date: 20120825
  Serious: Yes (Death, Hospitalization)
  Sender: FDA-Public Use
  Company Number: UTC-017302

PATIENT
  Age: 72 Year
  Sex: Female
  Weight: 94.5 kg

DRUGS (1)
  1. TYVASO [Suspect]
     Indication: HYPERTENSION
     Dosage: 18-54 MICROGRAMS (4 IN 1 D),INHALATION
     Route: 055
     Dates: start: 20100113

REACTIONS (1)
  - RESPIRATORY FAILURE [None]
